FAERS Safety Report 9579438 (Version 1)
Quarter: 2013Q4

REPORT INFORMATION
  Report Type: Spontaneous
  Country: US (occurrence: US)
  Receive Date: 20131001
  Receipt Date: 20131001
  Transmission Date: 20140711
  Serious: No
  Sender: FDA-Public Use
  Company Number: US-AMGEN-USASP2013017734

PATIENT
  Age: 60 Year
  Sex: Female
  Weight: 71.66 kg

DRUGS (3)
  1. ENBREL [Suspect]
     Indication: PSORIATIC ARTHROPATHY
     Dosage: 50 MG, QWK
     Route: 058
  2. VITAMIN D                          /00107901/ [Concomitant]
     Dosage: 5000 UNIT, UNK
     Route: 048
  3. ZANTAC [Concomitant]
     Dosage: 75 UNK, UNK
     Route: 048

REACTIONS (5)
  - Headache [Unknown]
  - Feeling abnormal [Recovered/Resolved]
  - Sinus congestion [Unknown]
  - Upper-airway cough syndrome [Unknown]
  - Fatigue [Unknown]
